FAERS Safety Report 13443611 (Version 1)
Quarter: 2017Q2

REPORT INFORMATION
  Report Type: Spontaneous
  Country: AU (occurrence: AU)
  Receive Date: 20170414
  Receipt Date: 20170414
  Transmission Date: 20170830
  Serious: Yes (Death)
  Sender: FDA-Public Use
  Company Number: AU-009507513-1704AUS005049

PATIENT
  Age: 1 Day

DRUGS (6)
  1. METRONIDAZOLE. [Suspect]
     Active Substance: METRONIDAZOLE
     Dosage: MATERNAL DOSE: 500 MILLIGRAM
     Route: 064
  2. BETAMETHASONE ACETATE (+) BETAMETHASONE SODIUM PHOSPHATE [Suspect]
     Active Substance: BETAMETHASONE ACETATE\BETAMETHASONE SODIUM PHOSPHATE
     Dosage: MATERNAL DOSE: 11.4 MILIGRAM
     Route: 064
  3. GENTAMICIN. [Suspect]
     Active Substance: GENTAMICIN
     Dosage: MATERNAL DOSE: 280 MILIGRAM
     Route: 064
  4. AMPICILLIN [Suspect]
     Active Substance: AMPICILLIN
     Dosage: MATERNAL DOSE: 2 GRAM
     Route: 064
  5. NIFEDIPINE. [Suspect]
     Active Substance: NIFEDIPINE
     Dosage: MATERNAL DOSE: 20 MILLIGRAM
     Route: 064
  6. MAGNESIUM SULFATE. [Suspect]
     Active Substance: MAGNESIUM SULFATE
     Dosage: UNK
     Route: 064

REACTIONS (5)
  - Hypotonia [Fatal]
  - Foetal exposure during pregnancy [Fatal]
  - Agonal rhythm [Fatal]
  - Pupil fixed [Fatal]
  - Hypokinesia [Fatal]
